FAERS Safety Report 10677410 (Version 1)
Quarter: 2014Q4

REPORT INFORMATION
  Report Type: Report from Study
  Country: NL (occurrence: NL)
  Receive Date: 20141227
  Receipt Date: 20141227
  Transmission Date: 20150529
  Serious: Yes (Hospitalization)
  Sender: FDA-Public Use
  Company Number: NL-ABBVIE-14P-114-1325314-00

PATIENT
  Age: 57 Year
  Sex: Male
  Weight: 115 kg

DRUGS (2)
  1. TRAMADOL [Concomitant]
     Active Substance: TRAMADOL
     Indication: PAIN
     Dosage: MAX 150 MG
     Route: 048
  2. LUCRIN DEPOT [Suspect]
     Active Substance: LEUPROLIDE ACETATE
     Indication: PROSTATE CANCER
     Route: 058
     Dates: start: 20140703

REACTIONS (2)
  - Gastrointestinal inflammation [Recovering/Resolving]
  - Prostatic operation [Unknown]

NARRATIVE: CASE EVENT DATE: 201408
